FAERS Safety Report 19525726 (Version 1)
Quarter: 2021Q3

REPORT INFORMATION
  Report Type: Spontaneous
  Country: US (occurrence: US)
  Receive Date: 20210712
  Receipt Date: 20210712
  Transmission Date: 20211014
  Serious: Yes (Other)
  Sender: FDA-Public Use
  Company Number: None

PATIENT
  Age: 36 Year
  Sex: Female

DRUGS (1)
  1. MAKENA [Suspect]
     Active Substance: HYDROXYPROGESTERONE CAPROATE
     Indication: PREMATURE LABOUR
     Dosage: OTHER DOSE:275MG/1.1ML; ONCE A WEEK ?
     Route: 058
     Dates: start: 20210609, end: 20210617

REACTIONS (2)
  - Injection site pruritus [None]
  - Peripheral swelling [None]

NARRATIVE: CASE EVENT DATE: 20210617
